FAERS Safety Report 18336707 (Version 1)
Quarter: 2020Q4

REPORT INFORMATION
  Report Type: Spontaneous
  Country: US (occurrence: US)
  Receive Date: 20201001
  Receipt Date: 20201001
  Transmission Date: 20210113
  Serious: Yes (Life-Threatening, Other)
  Sender: FDA-Public Use
  Company Number: US-FRESENIUS KABI-FK202010101

PATIENT
  Age: 54 Year
  Sex: Female
  Weight: 73 kg

DRUGS (30)
  1. FLUDARABINE [Suspect]
     Active Substance: FLUDARABINE PHOSPHATE
     Indication: B-CELL LYMPHOMA
     Route: 042
     Dates: start: 20200903, end: 20200905
  2. LISOCABTAGENE MARALEUCEL. [Suspect]
     Active Substance: LISOCABTAGENE MARALEUCEL
     Indication: B-CELL LYMPHOMA
     Dosage: (AUTOLOGOUS CD4+/CD8+ T CELLS EXPRESSING CD19 CAR) (SINGLE)
     Route: 042
     Dates: start: 20200910, end: 20200910
  3. MAGNESIUM SULFATE. [Concomitant]
     Active Substance: MAGNESIUM SULFATE
     Indication: PRODUCT USED FOR UNKNOWN INDICATION
     Route: 042
     Dates: start: 20200905, end: 20200905
  4. CYCLOPHOSPHAMIDE. [Suspect]
     Active Substance: CYCLOPHOSPHAMIDE
     Indication: B-CELL LYMPHOMA
     Route: 065
     Dates: start: 20190511, end: 201905
  5. CYCLOPHOSPHAMIDE. [Suspect]
     Active Substance: CYCLOPHOSPHAMIDE
     Route: 042
     Dates: start: 20200903, end: 20200905
  6. IBRUTINIB [Suspect]
     Active Substance: IBRUTINIB
     Indication: B-CELL LYMPHOMA
     Route: 048
     Dates: start: 20200731, end: 20200917
  7. ALLOPURINOL. [Concomitant]
     Active Substance: ALLOPURINOL
     Indication: PROPHYLAXIS
     Dosage: ONGOING
     Route: 048
     Dates: start: 20200723
  8. LEVETIRACETAM. [Concomitant]
     Active Substance: LEVETIRACETAM
     Indication: PROPHYLAXIS
     Dosage: ONGOING
     Route: 042
     Dates: start: 20200917
  9. PETHIDINE [Concomitant]
     Active Substance: MEPERIDINE
     Indication: PRODUCT USED FOR UNKNOWN INDICATION
     Dosage: ONGOING
     Route: 042
     Dates: start: 20200910
  10. FILGRASTIM SNDZ [Concomitant]
     Route: 058
     Dates: start: 20200914, end: 20200915
  11. SENNOSIDE A+B/DOCUSATE SODIUM [Concomitant]
     Indication: PRODUCT USED FOR UNKNOWN INDICATION
     Route: 048
     Dates: start: 20200911, end: 20200912
  12. SODIUM BICARBONATE\SODIUM CHLORIDE [Concomitant]
     Active Substance: SODIUM BICARBONATE\SODIUM CHLORIDE
     Indication: PRODUCT USED FOR UNKNOWN INDICATION
     Dosage: ONGOING
     Dates: start: 20200909
  13. CYCLOPHOSPHAMIDE. [Suspect]
     Active Substance: CYCLOPHOSPHAMIDE
     Route: 065
     Dates: start: 20190530, end: 20190822
  14. COLECALCIFEROL [Concomitant]
     Active Substance: CHOLECALCIFEROL
     Indication: PRODUCT USED FOR UNKNOWN INDICATION
     Dosage: ONGOING
     Route: 048
     Dates: start: 20200302
  15. DIPHENHYDRAMINE HYDROCHLORIDE. [Concomitant]
     Active Substance: DIPHENHYDRAMINE HYDROCHLORIDE
     Indication: PRODUCT USED FOR UNKNOWN INDICATION
     Route: 042
     Dates: start: 20200906, end: 20200906
  16. LEVOFLOXACIN. [Concomitant]
     Active Substance: LEVOFLOXACIN
     Indication: PROPHYLAXIS
     Route: 048
     Dates: start: 20200909, end: 20200916
  17. PANTOPRAZOLE [Concomitant]
     Active Substance: PANTOPRAZOLE
     Indication: PRODUCT USED FOR UNKNOWN INDICATION
     Dosage: ONGOING
     Route: 042
     Dates: start: 20200917
  18. FILGRASTIM SNDZ [Concomitant]
     Indication: NEUTROPENIA
     Route: 058
     Dates: start: 20200908, end: 20200908
  19. ENOXAPARIN [Concomitant]
     Active Substance: ENOXAPARIN
     Route: 058
     Dates: start: 20200909, end: 20200909
  20. ONDANSETRON [Concomitant]
     Active Substance: ONDANSETRON
     Indication: PRODUCT USED FOR UNKNOWN INDICATION
     Route: 042
     Dates: start: 20200903, end: 20200906
  21. SENNOSIDE A+B/DOCUSATE SODIUM [Concomitant]
     Route: 048
     Dates: start: 20200914, end: 20200915
  22. PARACETAMOL [Concomitant]
     Active Substance: ACETAMINOPHEN
     Indication: PRODUCT USED FOR UNKNOWN INDICATION
     Route: 048
     Dates: start: 20200910, end: 20200917
  23. DIPHENHYDRAMINE HYDROCHLORIDE. [Concomitant]
     Active Substance: DIPHENHYDRAMINE HYDROCHLORIDE
     Dosage: ONGOING
     Route: 042
     Dates: start: 20200910
  24. IBUPROFEN. [Concomitant]
     Active Substance: IBUPROFEN
     Indication: PRODUCT USED FOR UNKNOWN INDICATION
     Dosage: ONGOING
     Route: 048
     Dates: start: 20200910
  25. LEVETIRACETAM. [Concomitant]
     Active Substance: LEVETIRACETAM
     Indication: NEUROTOXICITY
     Route: 048
     Dates: start: 20200910, end: 20200917
  26. ONDANSETRON [Concomitant]
     Active Substance: ONDANSETRON
     Dosage: ONGOING
     Route: 042
     Dates: start: 20200910
  27. APIXABAN [Concomitant]
     Active Substance: APIXABAN
     Indication: DEEP VEIN THROMBOSIS
     Dosage: ONGOING
     Route: 065
     Dates: start: 20200914
  28. ENOXAPARIN [Concomitant]
     Active Substance: ENOXAPARIN
     Indication: PRODUCT USED FOR UNKNOWN INDICATION
     Route: 058
     Dates: start: 20200907, end: 20200907
  29. ENOXAPARIN [Concomitant]
     Active Substance: ENOXAPARIN
     Dosage: ONGOING
     Route: 058
     Dates: start: 20200918
  30. TRAMADOL. [Concomitant]
     Active Substance: TRAMADOL
     Indication: PRODUCT USED FOR UNKNOWN INDICATION
     Dosage: ONGOING
     Route: 048
     Dates: start: 20200909

REACTIONS (2)
  - Pneumonia [Not Recovered/Not Resolved]
  - Neurotoxicity [Not Recovered/Not Resolved]

NARRATIVE: CASE EVENT DATE: 20200915
